FAERS Safety Report 4869247-4 (Version None)
Quarter: 2005Q4

REPORT INFORMATION
  Report Type: 
  Country: None (occurrence: None)
  Receive Date: 20051230
  Receipt Date: 20040819
  Transmission Date: 20060501
  Serious: Yes (Other)
  Sender: FDA-Public Use
  Company Number: PHNU2004DE02936

PATIENT
  Sex: Male
  Weight: 92 kg

DRUGS (7)
  1. DIOVAN [Suspect]
     Indication: HYPERTENSION
     Dosage: 160 MG/D
     Route: 048
     Dates: start: 20040101, end: 20040601
  2. METOPROLOL [Concomitant]
     Indication: HYPERTENSION
     Dosage: 1 DF, QD
     Dates: start: 20040101
  3. NEXIUM [Concomitant]
     Indication: GASTROOESOPHAGEAL REFLUX DISEASE
     Dosage: 1 DF, QD
     Dates: start: 20040101
  4. ISOSORBIDE MONONITRATE [Concomitant]
     Indication: CORONARY ARTERY DISEASE
     Dosage: 1 DF, BID
     Dates: start: 20040101
  5. ASPIRIN [Concomitant]
     Dosage: 1 DF, QD
     Dates: start: 20040101
  6. FUROSEMIDE [Concomitant]
     Indication: OEDEMA
     Dosage: 2 DF, QD
     Dates: start: 20040101
  7. MOLSIDOMINE [Concomitant]
     Indication: ANGINA PECTORIS
     Dosage: 1 DF, QD
     Dates: start: 20040101

REACTIONS (27)
  - ARTHRALGIA [None]
  - ASTHENIA [None]
  - BLOOD CREATININE INCREASED [None]
  - BLOOD UREA INCREASED [None]
  - C-REACTIVE PROTEIN INCREASED [None]
  - CARDIAC DISORDER [None]
  - DEPRESSION [None]
  - ECZEMA [None]
  - FATIGUE [None]
  - FEELING COLD [None]
  - GAIT DISTURBANCE [None]
  - GINGIVAL HYPERPLASIA [None]
  - HEADACHE [None]
  - HYPERHIDROSIS [None]
  - IMPAIRED HEALING [None]
  - MALAISE [None]
  - MYALGIA [None]
  - NASOPHARYNGITIS [None]
  - OEDEMA PERIPHERAL [None]
  - ORAL MUCOSAL DISORDER [None]
  - PAIN [None]
  - PERFORMANCE STATUS DECREASED [None]
  - RHEUMATOID FACTOR INCREASED [None]
  - SINUSITIS [None]
  - SUICIDAL IDEATION [None]
  - VASCULITIS [None]
  - WEGENER'S GRANULOMATOSIS [None]
